FAERS Safety Report 7775549-4 (Version None)
Quarter: 2011Q3

REPORT INFORMATION
  Report Type: 
  Country: None (occurrence: None)
  Receive Date: 20110923
  Receipt Date: 20110914
  Transmission Date: 20111222
  Serious: Yes (Hospitalization)
  Sender: FDA-Public Use
  Company Number: US-JNJFOC-20110906262

PATIENT
  Sex: Female
  Weight: 108.86 kg

DRUGS (11)
  1. SOMA [Concomitant]
     Indication: MUSCLE SPASMS
     Route: 048
  2. HYDROCODONE [Concomitant]
     Indication: PAIN
     Dosage: 10/325MG
     Route: 048
     Dates: start: 20100101
  3. ZOLPIDEM [Concomitant]
     Indication: SLEEP DISORDER
     Route: 048
  4. LISINOPRIL [Concomitant]
     Indication: HYPERTENSION
     Route: 048
  5. REMICADE [Suspect]
     Route: 042
     Dates: start: 20110801
  6. ZOCOR [Concomitant]
     Indication: BLOOD CHOLESTEROL INCREASED
     Route: 048
  7. LOZAL [Concomitant]
     Indication: BLOOD PRESSURE
     Route: 048
  8. ATENOLOL [Concomitant]
     Indication: WOLFF-PARKINSON-WHITE SYNDROME
     Route: 048
  9. REMICADE [Suspect]
     Indication: RHEUMATOID ARTHRITIS
     Route: 042
     Dates: start: 20110701
  10. GLUCOPHAGE [Concomitant]
     Indication: TYPE 2 DIABETES MELLITUS
     Route: 048
  11. JANUVIA [Concomitant]
     Indication: TYPE 2 DIABETES MELLITUS
     Route: 048

REACTIONS (11)
  - ASTHENIA [None]
  - PYREXIA [None]
  - JOINT EFFUSION [None]
  - APHASIA [None]
  - DIARRHOEA [None]
  - BLOOD PRESSURE DECREASED [None]
  - MALAISE [None]
  - RASH [None]
  - CONFUSIONAL STATE [None]
  - NAUSEA [None]
  - VERTIGO [None]
